FAERS Safety Report 15793384 (Version 2)
Quarter: 2019Q2

REPORT INFORMATION
  Report Type: Spontaneous
  Country: US (occurrence: US)
  Receive Date: 20190107
  Receipt Date: 20190408
  Transmission Date: 20190711
  Serious: No
  Sender: FDA-Public Use
  Company Number: US-ACLARIS THERAPEUTICS-2018US012666

PATIENT
  Age: 45 Year
  Sex: Female
  Weight: 90.7 kg

DRUGS (3)
  1. ESKATA [Suspect]
     Active Substance: HYDROGEN PEROXIDE
     Dosage: 1 DF, 3 TIMES
     Route: 061
     Dates: start: 201811, end: 201811
  2. ESKATA [Suspect]
     Active Substance: HYDROGEN PEROXIDE
     Indication: SEBORRHOEIC KERATOSIS
     Dosage: 1 DF, 3 TIMES
     Route: 061
     Dates: start: 201810, end: 201810
  3. ESKATA [Suspect]
     Active Substance: HYDROGEN PEROXIDE
     Dosage: 1 DF, 3 TIMES
     Route: 061
     Dates: start: 20181213, end: 20181213

REACTIONS (2)
  - Application site vesicles [Not Recovered/Not Resolved]
  - Post inflammatory pigmentation change [Not Recovered/Not Resolved]

NARRATIVE: CASE EVENT DATE: 20181213
